FAERS Safety Report 14145681 (Version 1)
Quarter: 2017Q4

REPORT INFORMATION
  Report Type: Spontaneous
  Country: US (occurrence: US)
  Receive Date: 20171030
  Receipt Date: 20171030
  Transmission Date: 20180321
  Serious: Yes (Life-Threatening, Hospitalization, Disabling)
  Sender: FDA-Public Use
  Company Number: None

PATIENT
  Age: 83 Year
  Sex: Male
  Weight: 72 kg

DRUGS (4)
  1. RITUXAN [Suspect]
     Active Substance: RITUXIMAB
     Indication: LYMPHOMA
     Dosage: ?          OTHER ROUTE:INTRAVENOUS INFUSION?
     Route: 042
  2. MACHINE TO GET OUT OF THE BED [Concomitant]
  3. HIGHBLOOD MEDICATION [Concomitant]
  4. WHEELCHAIR [Concomitant]
     Active Substance: DEVICE

REACTIONS (10)
  - Visual impairment [None]
  - Loss of personal independence in daily activities [None]
  - Progressive multifocal leukoencephalopathy [None]
  - Condition aggravated [None]
  - Fall [None]
  - Gait disturbance [None]
  - Asthenia [None]
  - Central nervous system lesion [None]
  - Fatigue [None]
  - Paralysis [None]

NARRATIVE: CASE EVENT DATE: 20170925
